FAERS Safety Report 5404787-0 (Version None)
Quarter: 2007Q3

REPORT INFORMATION
  Report Type: 
  Country: None (occurrence: None)
  Receive Date: 20070713
  Receipt Date: 20070419
  Transmission Date: 20080115
  Serious: No
  Sender: FDA-Public Use
  Company Number: REM_00334_2007

PATIENT
  Age: 36 Year
  Sex: Female
  Weight: 70 kg

DRUGS (9)
  1. REMODULIN [Suspect]
     Indication: PULMONARY HYPERTENSION
     Dosage: 16 NG/KG/MIN (0.016 UG/KG,1 IN 1 MIN), INTRAVENOUS
     Route: 042
     Dates: start: 20070108
  2. SILDENAFIL CITRATE [Concomitant]
  3. LASIX [Concomitant]
  4. SPIRONOLACTONE [Concomitant]
  5. DIGOXIN [Concomitant]
  6. LOPERAMIDE HCL [Concomitant]
  7. ONDANSETRON HCL [Concomitant]
  8. ZOLPIDEM TARTRATE [Concomitant]
  9. LORTAB /00607101/ (VICODIN) [Concomitant]

REACTIONS (1)
  - CENTRAL LINE INFECTION [None]
